FAERS Safety Report 24240367 (Version 1)
Quarter: 2024Q3

REPORT INFORMATION
  Report Type: Spontaneous
  Country: US (occurrence: US)
  Receive Date: 20240822
  Receipt Date: 20240822
  Transmission Date: 20241017
  Serious: Yes (Hospitalization, Other)
  Sender: GLAXOSMITHKLINE
  Company Number: US-GLAXOSMITHKLINE-US2024GSK103842

PATIENT

DRUGS (1)
  1. LAMOTRIGINE [Suspect]
     Active Substance: LAMOTRIGINE
     Indication: Product used for unknown indication
     Dosage: UNK

REACTIONS (11)
  - Haemophagocytic lymphohistiocytosis [Recovering/Resolving]
  - Stress cardiomyopathy [Recovering/Resolving]
  - Ventricular fibrillation [Recovering/Resolving]
  - Pyrexia [Recovering/Resolving]
  - Headache [Recovering/Resolving]
  - Malaise [Recovering/Resolving]
  - Encephalopathy [Recovering/Resolving]
  - Shock [Recovering/Resolving]
  - Ventricular hypokinesia [Recovering/Resolving]
  - Haemodynamic instability [Recovering/Resolving]
  - Ventricular extrasystoles [Recovering/Resolving]
